FAERS Safety Report 4953846-5 (Version None)
Quarter: 2006Q1

REPORT INFORMATION
  Report Type: 
  Country: None (occurrence: None)
  Receive Date: 20060321
  Receipt Date: 20060310
  Transmission Date: 20060701
  Serious: Yes (Life-Threatening, Other)
  Sender: FDA-Public Use
  Company Number: 163-20785-06030351

PATIENT
  Age: 15 Year
  Sex: Male

DRUGS (4)
  1. THALOMID [Suspect]
     Indication: BRAIN NEOPLASM MALIGNANT
     Dosage: 100 MG, QD, ORAL
     Route: 048
     Dates: start: 20051005, end: 20060228
  2. CELEBREX [Suspect]
     Indication: BRAIN NEOPLASM MALIGNANT
     Dosage: 200 MG, QD, ORAL
     Route: 048
     Dates: start: 20051005, end: 20060228
  3. FENOFIBRATE [Suspect]
     Indication: BRAIN NEOPLASM MALIGNANT
     Dosage: 96 MG, QD, ORAL
     Route: 048
     Dates: start: 20051005, end: 20060228
  4. ETOPOSIDE [Suspect]
     Indication: BRAIN NEOPLASM MALIGNANT
     Dosage: 50 MG, QD, ORAL
     Route: 048
     Dates: start: 20051005, end: 20060228

REACTIONS (3)
  - AGRANULOCYTOSIS [None]
  - HAEMOGLOBIN DECREASED [None]
  - WHITE BLOOD CELL COUNT DECREASED [None]
